FAERS Safety Report 17636447 (Version 1)
Quarter: 2020Q2

REPORT INFORMATION
  Report Type: Spontaneous
  Country: US (occurrence: US)
  Receive Date: 20200407
  Receipt Date: 20200407
  Transmission Date: 20200713
  Serious: No
  Sender: FDA-Public Use
  Company Number: US-ELI_LILLY_AND_COMPANY-US202004002053

PATIENT
  Age: 72 Year
  Sex: Female

DRUGS (2)
  1. EMGALITY [Concomitant]
     Active Substance: GALCANEZUMAB-GNLM
     Indication: PRODUCT USED FOR UNKNOWN INDICATION
  2. TALTZ [Suspect]
     Active Substance: IXEKIZUMAB
     Indication: PSORIASIS
     Dosage: 80 MG, UNKNOWN
     Route: 058

REACTIONS (5)
  - Injection site warmth [Not Recovered/Not Resolved]
  - Injection site pain [Recovering/Resolving]
  - Injection site erythema [Recovering/Resolving]
  - Eczema [Unknown]
  - Injection site swelling [Recovering/Resolving]

NARRATIVE: CASE EVENT DATE: 20200402
